FAERS Safety Report 21160572 (Version 5)
Quarter: 2023Q1

REPORT INFORMATION
  Report Type: Report from Study
  Country: US (occurrence: US)
  Receive Date: 20220802
  Receipt Date: 20230127
  Transmission Date: 20230417
  Serious: No
  Sender: FDA-Public Use
  Company Number: US-BRISTOL-MYERS SQUIBB COMPANY-2022-080600

PATIENT
  Age: 41 Year
  Sex: Male

DRUGS (2)
  1. REVLIMID [Suspect]
     Active Substance: LENALIDOMIDE
     Indication: Product used for unknown indication
     Dosage: 15MG FOR 21 DAYS ON 7 DAYS OFF
     Route: 048
     Dates: start: 202206
  2. REVLIMID [Suspect]
     Active Substance: LENALIDOMIDE
     Dosage: FREQ - DAILY
     Route: 048
     Dates: start: 202206

REACTIONS (10)
  - Insomnia [Unknown]
  - Oedema peripheral [Unknown]
  - Illness [Unknown]
  - Product dose omission issue [Unknown]
  - Fatigue [Unknown]
  - Depression [Unknown]
  - Confusional state [Unknown]
  - Speech disorder [Unknown]
  - Impaired reasoning [Unknown]
  - Memory impairment [Unknown]

NARRATIVE: CASE EVENT DATE: 20220726
